FAERS Safety Report 10042719 (Version 1)
Quarter: 2014Q1

REPORT INFORMATION
  Report Type: Spontaneous
  Country: US (occurrence: US)
  Receive Date: 20140327
  Receipt Date: 20140327
  Transmission Date: 20141002
  Serious: Yes (Death, Other)
  Sender: FDA-Public Use
  Company Number: US-TEVA-471519USA

PATIENT
  Age: 73 Year
  Sex: Female

DRUGS (3)
  1. GEMCITABINE [Suspect]
     Indication: CHOLANGIOCARCINOMA
     Route: 065
  2. BEVACIZUMAB [Suspect]
     Indication: CHOLANGIOCARCINOMA
     Route: 065
  3. CAPECITABINE [Concomitant]
     Indication: CHOLANGIOCARCINOMA
     Route: 065

REACTIONS (2)
  - Haemolytic uraemic syndrome [Recovering/Resolving]
  - Death [Fatal]
